FAERS Safety Report 6456640-1 (Version None)
Quarter: 2009Q4

REPORT INFORMATION
  Report Type: 
  Country: None (occurrence: None)
  Receive Date: 20091124
  Receipt Date: 20091124
  Transmission Date: 20100525
  Serious: No
  Sender: FDA-Public Use
  Company Number: None

PATIENT
  Sex: Male
  Weight: 53.5 kg

DRUGS (5)
  1. PREDNISONE [Suspect]
     Dosage: 425 MG
     Dates: end: 20091120
  2. VINCRISTINE SULFATE [Suspect]
     Dosage: 2 MG
     Dates: end: 20091114
  3. CYTARABINE [Suspect]
     Dosage: 70 MG
     Dates: end: 20091113
  4. DAUNORUBICIN HCL [Suspect]
     Dosage: 35 MG
     Dates: end: 20091114
  5. PEG-L ASPARAGINASE (PEGASPARGASE, ONCOSPAR) [Suspect]
     Dosage: 3575 IU
     Dates: end: 20091117

REACTIONS (1)
  - HYPERGLYCAEMIA [None]
